FAERS Safety Report 10264495 (Version 2)
Quarter: 2014Q2

REPORT INFORMATION
  Report Type: Report from Study
  Country: DE (occurrence: DE)
  Receive Date: 20140627
  Receipt Date: 20140627
  Transmission Date: 20141212
  Serious: Yes (Hospitalization)
  Sender: FDA-Public Use
  Company Number: DE-009507513-1405DEU005407

PATIENT
  Age: 52 Year
  Sex: Male
  Weight: 79 kg

DRUGS (2)
  1. RALTEGRAVIR POTASSIUM [Suspect]
     Indication: HIV INFECTION
     Dosage: 400 MG, BID (STRENGTH 400 MG)
     Route: 048
     Dates: start: 20130722
  2. KALETRA [Concomitant]
     Indication: HIV INFECTION
     Dosage: 2 UNITS, BID
     Dates: start: 20130722

REACTIONS (3)
  - Lymphogranuloma venereum [Recovered/Resolved]
  - Abscess drainage [Recovered/Resolved]
  - Lymphadenopathy [Recovered/Resolved]
